FAERS Safety Report 22322657 (Version 2)
Quarter: 2023Q2

REPORT INFORMATION
  Report Type: Spontaneous
  Country: US (occurrence: None)
  Receive Date: 20230516
  Receipt Date: 20230516
  Transmission Date: 20230721
  Serious: No
  Sender: FDA-Public Use
  Company Number: US-ARIS GLOBAL-AXS202208-000020

PATIENT
  Age: 26 Year
  Sex: Male

DRUGS (2)
  1. SUNOSI [Suspect]
     Active Substance: SOLRIAMFETOL
     Indication: Product used for unknown indication
     Dosage: STARTED AT 75MG FOR A WEEK THEN WENT UP TO 150MG
     Route: 048
     Dates: start: 2022
  2. SUNOSI [Suspect]
     Active Substance: SOLRIAMFETOL
     Dosage: STARTED AT 75MG FOR A WEEK THEN WENT UP TO 150MG
     Route: 048
     Dates: start: 202207

REACTIONS (1)
  - Drug ineffective [Unknown]
